FAERS Safety Report 13104663 (Version 1)
Quarter: 2017Q1

REPORT INFORMATION
  Report Type: Report from Study
  Country: ES (occurrence: ES)
  Receive Date: 20170111
  Receipt Date: 20170111
  Transmission Date: 20170428
  Serious: Yes (Death)
  Sender: FDA-Public Use
  Company Number: ES-PFIZER INC-2017010308

PATIENT

DRUGS (2)
  1. OXALIPLATIN. [Suspect]
     Active Substance: OXALIPLATIN
     Indication: ADENOCARCINOMA GASTRIC
     Dosage: 130 MG/M2, CYCLIC (DAY 1; CYCLES EVERY 3 WEEKS)
     Route: 042
  2. RALTITREXED DISODIUM [Suspect]
     Active Substance: RALTITREXED
     Indication: ADENOCARCINOMA GASTRIC
     Dosage: 3 MG/M2, CYCLIC (DAY 1; CYCLES EVERY 3 WEEKS)
     Route: 042

REACTIONS (2)
  - Febrile neutropenia [Fatal]
  - Septic shock [Fatal]
